FAERS Safety Report 4955199-5 (Version None)
Quarter: 2006Q1

REPORT INFORMATION
  Report Type: 
  Country: None (occurrence: None)
  Receive Date: 20060322
  Receipt Date: 20060310
  Transmission Date: 20060701
  Serious: Yes (Other)
  Sender: FDA-Public Use
  Company Number: 2006035148

PATIENT
  Sex: Female

DRUGS (4)
  1. LIPITOR [Suspect]
     Indication: BLOOD CHOLESTEROL ABNORMAL
     Dosage: 10 MG (20 MG, 1 IN 1 D)
     Dates: end: 20051201
  2. CELEBREX [Suspect]
     Indication: OSTEOARTHRITIS
  3. SYNTHROID [Concomitant]
  4. ALL OTHER THERAPEUTIC PRODUCTS [Concomitant]

REACTIONS (6)
  - DEPRESSION [None]
  - FALL [None]
  - MYALGIA [None]
  - WEIGHT DECREASED [None]
  - WEIGHT INCREASED [None]
  - WRIST FRACTURE [None]
